FAERS Safety Report 24655414 (Version 2)
Quarter: 2024Q4

REPORT INFORMATION
  Report Type: Report from Study
  Country: US (occurrence: US)
  Receive Date: 20241123
  Receipt Date: 20241209
  Transmission Date: 20250115
  Serious: Yes (Other)
  Sender: AIMMUNE
  Company Number: US-ZENPEP LLC-2024AIMT01573

PATIENT

DRUGS (21)
  1. ZENPEP [Suspect]
     Active Substance: PANCRELIPASE AMYLASE\PANCRELIPASE LIPASE\PANCRELIPASE PROTEASE
     Indication: Pancreatic failure
     Dosage: 40000 UNITS, 2 CAPSULES WITH MEALS, 1 WITH SNACKS
     Route: 048
     Dates: start: 20221111
  2. ZENPEP [Suspect]
     Active Substance: PANCRELIPASE AMYLASE\PANCRELIPASE LIPASE\PANCRELIPASE PROTEASE
     Dosage: 40000 UPS UNITS, ONCE, LAST DOSE PRIOR TO EVENT
     Route: 048
  3. ASPIRIN [Concomitant]
     Active Substance: ASPIRIN
     Indication: Product used for unknown indication
     Dosage: 81MG, 1TAB ONCE A DAY BY MOUTH
     Route: 048
     Dates: start: 20230523
  4. ASPIRIN [Concomitant]
     Active Substance: ASPIRIN
     Indication: Product used for unknown indication
     Dosage: 81MG, 1 CHEWABLE TAB ONCE A DAY BY MOUTH
     Dates: start: 20240611
  5. ATORVASTATIN [Concomitant]
     Active Substance: ATORVASTATIN
     Indication: Product used for unknown indication
     Dosage: 10 MG, 1 TAB ONCE A DAY BY MOUTH
     Dates: start: 20230523
  6. BASAGLAR KWIKPEN [Concomitant]
     Active Substance: INSULIN GLARGINE
     Indication: Product used for unknown indication
     Dosage: 100 IU/ML (3ML)
  7. CARVEDILOL [Concomitant]
     Active Substance: CARVEDILOL
     Indication: Product used for unknown indication
     Dosage: 12.5MG, AS NEEDED, ORALLY
     Dates: start: 20220414
  8. CHOLECALCIFEROL [Concomitant]
     Active Substance: CHOLECALCIFEROL
     Indication: Product used for unknown indication
     Dosage: 5000 UNIT, ONE CAPSULE DAILY BY MOUTH
     Dates: start: 20231101
  9. DICYCLOMINE [Concomitant]
     Active Substance: DICYCLOMINE HYDROCHLORIDE
     Indication: Abdominal pain
     Dosage: 10MG, 1-2 CAPS  BY MOUTH EVERY SIX HOURS AS NEEDED
     Dates: start: 20231101
  10. ESTRADIOL [Concomitant]
     Active Substance: ESTRADIOL
     Indication: Product used for unknown indication
     Dosage: 0.01% (0.1MG/G) CREAM, AS NEEDED
     Dates: start: 20231101
  11. FAMOTIDINE [Concomitant]
     Active Substance: FAMOTIDINE
     Indication: Product used for unknown indication
     Dosage: 20MG, 1TAB BY MOUTH ONCE A DAY AS DIRECTED
     Dates: start: 20230523
  12. HUMALOG KWIKPEN [Concomitant]
     Active Substance: INSULIN LISPRO
     Indication: Product used for unknown indication
     Dosage: 100 IU/ML, SUB-Q, UP TO 30IU DAILY, IN DIDVED DOSES BEFORE MEALS
  13. LANTUS [Concomitant]
     Active Substance: INSULIN GLARGINE
     Indication: Product used for unknown indication
     Dosage: 100 IU/ML (3ML)
  14. LOPERAMIDE [Concomitant]
     Active Substance: LOPERAMIDE
     Indication: Product used for unknown indication
     Dosage: 2MG, AS NEEDED
     Dates: start: 20231101
  15. MAGNESIUM OXIDE [Concomitant]
     Active Substance: MAGNESIUM OXIDE
     Indication: Product used for unknown indication
     Dosage: 500MG, 2-4 CAPS ONCE A DAY AS DIRECTED FOR 30 DAYS
     Dates: start: 20231101
  16. VITAMINS NOS [Concomitant]
     Active Substance: VITAMINS
     Indication: Product used for unknown indication
     Dosage: 1TAB DAILY BY MOUTH
     Dates: start: 20230523
  17. PREDNISONE [Concomitant]
     Active Substance: PREDNISONE
     Indication: Product used for unknown indication
     Dosage: 5MG, 1 TAB PO QD
     Dates: start: 20230523
  18. PROBIOTICS NOS [Concomitant]
     Active Substance: PROBIOTICS NOS
     Indication: Product used for unknown indication
     Dosage: 1 TAB PO QD
     Dates: start: 20240611
  19. PROGRAF [Concomitant]
     Active Substance: TACROLIMUS
     Indication: Product used for unknown indication
     Dosage: 1MG, 1 CAPSULE PO BID
     Dates: start: 20240611
  20. TUMS [Concomitant]
     Active Substance: CALCIUM CARBONATE
     Indication: Product used for unknown indication
     Dosage: 1 TAB PO QD
     Dates: start: 20230523
  21. VALGANCICLOVIR [Concomitant]
     Active Substance: VALGANCICLOVIR
     Indication: Cytomegalovirus colitis
     Dosage: 450MG TAB

REACTIONS (4)
  - Kidney transplant rejection [Unknown]
  - Cytomegalovirus colitis [Unknown]
  - Diarrhoea [Unknown]
  - Abdominal pain [Unknown]
